FAERS Safety Report 19661552 (Version 1)
Quarter: 2021Q3

REPORT INFORMATION
  Report Type: Spontaneous
  Country: DE (occurrence: DE)
  Receive Date: 20210805
  Receipt Date: 20210805
  Transmission Date: 20211014
  Serious: Yes (Hospitalization)
  Sender: FDA-Public Use
  Company Number: DE-INDIVIOR UK LIMITED-INDV-130676-2021

PATIENT

DRUGS (1)
  1. BUPRENORPHINE. [Suspect]
     Active Substance: BUPRENORPHINE
     Indication: PRODUCT USED FOR UNKNOWN INDICATION
     Dosage: UNK (SUBSTITUTION FOR 10 YEARS)
     Route: 048

REACTIONS (4)
  - Abdominal pain upper [Unknown]
  - Intentional product use issue [Unknown]
  - Chromaturia [Unknown]
  - Weight decreased [Unknown]
